FAERS Safety Report 8769741 (Version 3)
Quarter: 2012Q4

REPORT INFORMATION
  Report Type: 
  Country: US (occurrence: US)
  Receive Date: 20120905
  Receipt Date: 20121207
  Transmission Date: 20130627
  Serious: Yes (Hospitalization, Other)
  Sender: FDA-Public Use
  Company Number: US-MPIJNJ-2012-04566

PATIENT
  Sex: Male
  Weight: 66.9 kg

DRUGS (3)
  1. VELCADE [Suspect]
     Indication: MULTIPLE MYELOMA
     Dosage: 1.3 mg/m2, Cyclic
     Route: 042
     Dates: start: 201001, end: 201003
  2. DOXIL [Suspect]
     Indication: MULTIPLE MYELOMA
     Dosage: 30 mg/m2, Cyclic
     Dates: start: 201001, end: 201003
  3. ZOMETA [Suspect]
     Indication: MULTIPLE MYELOMA
     Dosage: UNK, Monthly
     Dates: end: 201006

REACTIONS (5)
  - Pneumonia [Unknown]
  - Failure to thrive [Recovered/Resolved]
  - Fatigue [Unknown]
  - Asthenia [Unknown]
  - Muscular weakness [None]
